FAERS Safety Report 20877741 (Version 1)
Quarter: 2022Q2

REPORT INFORMATION
  Report Type: Spontaneous
  Country: US (occurrence: None)
  Receive Date: 20220526
  Receipt Date: 20220526
  Transmission Date: 20220721
  Serious: Yes (Hospitalization)
  Sender: FDA-Public Use
  Company Number: None

PATIENT
  Sex: Male

DRUGS (1)
  1. MYCOPHENOLIC ACID [Suspect]
     Active Substance: MYCOPHENOLIC ACID
     Indication: Corneal transplant
     Dosage: TAKE 2 TABLETS (1,000 MG) BY MOUTH IN THE MORNING AND 2 TABLETS (1,000MG) BEFORE BETIME?
     Route: 048
     Dates: start: 20220504

REACTIONS (2)
  - Fall [None]
  - Eye operation [None]

NARRATIVE: CASE EVENT DATE: 20220501
